FAERS Safety Report 9105927 (Version 2)
Quarter: 2013Q1

REPORT INFORMATION
  Report Type: Spontaneous
  Country: FR (occurrence: FR)
  Receive Date: 20130221
  Receipt Date: 20130227
  Transmission Date: 20140127
  Serious: Yes (Death)
  Sender: FDA-Public Use
  Company Number: FR-B.I. PHARMACEUTICALS,INC./RIDGEFIELD-2013-FF-00465FF

PATIENT
  Age: 82 Year
  Sex: Male
  Weight: 72 kg

DRUGS (9)
  1. PRADAXA [Suspect]
     Indication: ATRIAL FIBRILLATION
     Dosage: 220 MG
     Route: 048
     Dates: start: 20130118, end: 20130121
  2. FUROSEMIDE [Suspect]
     Indication: CARDIAC FAILURE
     Dosage: 125 MG
     Route: 048
     Dates: start: 20130118
  3. ISOPTINE [Suspect]
     Indication: HYPERTENSION
     Dosage: 120 MG
     Route: 048
     Dates: end: 20130121
  4. BIPROFENID [Suspect]
     Indication: COLON NEOPLASM
     Dosage: 100 MG
     Route: 048
     Dates: end: 20130121
  5. PLAVIX [Suspect]
     Indication: CORONARY ARTERIAL STENT INSERTION
     Dosage: 75 MG
     Route: 048
     Dates: end: 20130121
  6. ALTEIS DUO [Concomitant]
  7. MOPRAL [Concomitant]
  8. LYRICA [Concomitant]
  9. DAFALGAN [Concomitant]

REACTIONS (6)
  - Gastrointestinal haemorrhage [Fatal]
  - Blood creatinine increased [Unknown]
  - Prothrombin time abnormal [Unknown]
  - Kaolin cephalin clotting time abnormal [Unknown]
  - Renal failure [Unknown]
  - Drug interaction [Unknown]
